FAERS Safety Report 24415948 (Version 2)
Quarter: 2024Q4

REPORT INFORMATION
  Report Type: Spontaneous
  Country: CN (occurrence: CN)
  Receive Date: 20241009
  Receipt Date: 20241010
  Transmission Date: 20250115
  Serious: Yes (Death, Life-Threatening, Hospitalization, Other)
  Sender: PFIZER
  Company Number: CN-MLMSERVICE-20240927-PI209854-00270-1

PATIENT
  Age: 74 Year
  Sex: Female

DRUGS (9)
  1. METHYLPREDNISOLONE [Suspect]
     Active Substance: METHYLPREDNISOLONE
     Indication: Pemphigoid
     Dosage: 40 MG, 1X/DAY
     Route: 048
  2. METHYLPREDNISOLONE [Suspect]
     Active Substance: METHYLPREDNISOLONE
     Dosage: 20 MG IN THE MORNING AND 16 MG IN THE EVENING
     Route: 048
  3. METHYLPREDNISOLONE [Suspect]
     Active Substance: METHYLPREDNISOLONE
     Dosage: 20 MG IN THE MORNING AND 16 MG IN THE EVENING.
     Route: 048
  4. METHYLPREDNISOLONE [Suspect]
     Active Substance: METHYLPREDNISOLONE
     Dosage: GRADUALLY REDUCED
  5. METHYLPREDNISOLONE [Suspect]
     Active Substance: METHYLPREDNISOLONE
     Dosage: DOSAGE ADJUSTED TO 16 MG IN THE MORNING AND 12 MG IN THE EVENING
     Route: 048
  6. METHYLPREDNISOLONE [Suspect]
     Active Substance: METHYLPREDNISOLONE
     Dosage: DOSAGE ADJUSTED TO 16 MG IN THE MORNING AND 12 MG IN THE EVENING
     Route: 048
  7. METHYLPREDNISOLONE [Suspect]
     Active Substance: METHYLPREDNISOLONE
     Dosage: DOSAGE WAS REDUCED TO 4 MG
     Route: 048
  8. DUPILUMAB [Suspect]
     Active Substance: DUPILUMAB
     Indication: Pemphigoid
     Dosage: INITIAL DOSE OF 600 MG (300 MG INJECTED TWICE)
     Route: 058
  9. DUPILUMAB [Suspect]
     Active Substance: DUPILUMAB
     Dosage: 300 MG EVERY 2 WEEKS
     Route: 058

REACTIONS (13)
  - Pneumonia [Fatal]
  - Enterococcal infection [Recovering/Resolving]
  - Respiratory failure [Recovering/Resolving]
  - Central nervous system infection [Recovering/Resolving]
  - Cytomegalovirus infection [Recovering/Resolving]
  - Immunosuppression [Recovering/Resolving]
  - Epstein-Barr virus infection [Recovering/Resolving]
  - Herpes simplex [Recovering/Resolving]
  - Central nervous system viral infection [Recovering/Resolving]
  - Viral sepsis [Recovering/Resolving]
  - Varicella zoster virus infection [Recovering/Resolving]
  - Human herpesvirus 7 infection [Recovering/Resolving]
  - Off label use [Unknown]
